FAERS Safety Report 24889002 (Version 1)
Quarter: 2025Q1

REPORT INFORMATION
  Report Type: Spontaneous
  Country: US (occurrence: None)
  Receive Date: 20250124
  Receipt Date: 20250124
  Transmission Date: 20250408
  Serious: Yes (Hospitalization)
  Sender: FDA-CTU
  Company Number: None

PATIENT
  Age: 41 Year
  Sex: Female
  Weight: 127.01 kg

DRUGS (11)
  1. FASENRA [Suspect]
     Active Substance: BENRALIZUMAB
     Indication: Asthma
     Dates: start: 20230314
  2. ELIQUIS [Concomitant]
     Active Substance: APIXABAN
  3. ADVAIR HFA [Concomitant]
     Active Substance: FLUTICASONE PROPIONATE\SALMETEROL XINAFOATE
  4. ALBUTEROL SULFATE [Concomitant]
     Active Substance: ALBUTEROL SULFATE
  5. CYCLOBENZAPRINE [Concomitant]
     Active Substance: CYCLOBENZAPRINE
  6. EPIPEN [Concomitant]
     Active Substance: EPINEPHRINE
  7. LEVALBUTEROL [Concomitant]
     Active Substance: LEVALBUTEROL
  8. LORATADINE [Concomitant]
     Active Substance: LORATADINE
  9. LORAZEPAM [Concomitant]
     Active Substance: LORAZEPAM
  10. PANTROPRAZOLE [Concomitant]
  11. PREDNISONE [Concomitant]
     Active Substance: PREDNISONE

REACTIONS (1)
  - Asthma [None]

NARRATIVE: CASE EVENT DATE: 20250122
